FAERS Safety Report 12264011 (Version 1)
Quarter: 2016Q2

REPORT INFORMATION
  Report Type: Spontaneous
  Country: US (occurrence: US)
  Receive Date: 20160413
  Receipt Date: 20160413
  Transmission Date: 20160815
  Serious: No
  Sender: FDA-Public Use
  Company Number: US-JNJFOC-20160312652

PATIENT
  Age: 4 Year
  Sex: Male
  Weight: 15.88 kg

DRUGS (4)
  1. MOTRIN INFANTS [Suspect]
     Active Substance: IBUPROFEN
     Indication: INFLAMMATION
     Route: 048
     Dates: start: 20160302
  2. MOTRIN INFANTS [Suspect]
     Active Substance: IBUPROFEN
     Indication: PAIN
     Route: 048
     Dates: start: 20160308
  3. MOTRIN INFANTS [Suspect]
     Active Substance: IBUPROFEN
     Indication: PAIN
     Route: 048
     Dates: start: 20160302
  4. MOTRIN INFANTS [Suspect]
     Active Substance: IBUPROFEN
     Indication: INFLAMMATION
     Route: 048
     Dates: start: 20160308

REACTIONS (3)
  - Drug effect incomplete [Unknown]
  - Drug administered to patient of inappropriate age [Unknown]
  - Off label use [Unknown]
